FAERS Safety Report 4618153-9 (Version None)
Quarter: 2005Q1

REPORT INFORMATION
  Report Type: 
  Country: None (occurrence: None)
  Receive Date: 20050322
  Receipt Date: 20050309
  Transmission Date: 20050727
  Serious: Yes (Hospitalization)
  Sender: FDA-Public Use
  Company Number: 2005043330

PATIENT
  Sex: Female

DRUGS (2)
  1. DOSTINEX [Suspect]
     Indication: PITUITARY TUMOUR
  2. LEVOFLOXACIN [Suspect]
     Indication: ILL-DEFINED DISORDER

REACTIONS (9)
  - ASTHMA [None]
  - DRUG HYPERSENSITIVITY [None]
  - DYSPHAGIA [None]
  - DYSPNOEA [None]
  - ERYTHEMA [None]
  - FEELING ABNORMAL [None]
  - IMMUNISATION [None]
  - INFLUENZA IMMUNISATION [None]
  - THROAT IRRITATION [None]
